FAERS Safety Report 12904571 (Version 1)
Quarter: 2016Q4

REPORT INFORMATION
  Report Type: Report from Study
  Country: US (occurrence: US)
  Receive Date: 20161102
  Receipt Date: 20161102
  Transmission Date: 20170207
  Serious: Yes (Death, Life-Threatening, Hospitalization)
  Sender: FDA-Public Use
  Company Number: US-PFIZER INC-3160200

PATIENT
  Age: 71 Year
  Sex: Male
  Weight: 73.4 kg

DRUGS (24)
  1. OMNIPAQUE 350 [Concomitant]
     Indication: CHEST X-RAY
     Dosage: 100 ML, ONCE
     Route: 042
     Dates: start: 20151015, end: 20151015
  2. POLYETHYLENE GLYCOL 3350. [Concomitant]
     Active Substance: POLYETHYLENE GLYCOL 3350
     Indication: CONSTIPATION
     Dosage: 17 G, 1 IN 1 D
     Route: 048
     Dates: start: 20151026, end: 20151125
  3. PRAVASTATIN. [Concomitant]
     Active Substance: PRAVASTATIN
     Indication: BLOOD CHOLESTEROL INCREASED
     Dosage: 20 MG, 1 IN 1 D
     Route: 048
     Dates: start: 20120101
  4. TAMSULOSIN [Concomitant]
     Active Substance: TAMSULOSIN
     Indication: PROPHYLAXIS
     Dosage: 0.4 MG, 1 IN 1 D
     Route: 048
     Dates: start: 20151018, end: 20151026
  5. VANCOMYCIN [Concomitant]
     Active Substance: VANCOMYCIN
     Indication: INFECTION PROPHYLAXIS
     Dosage: 750 MG, 2 IN 1 D
     Route: 042
     Dates: start: 20151015, end: 20151017
  6. SENNOSIDES-DOCUSATE SODIUM [Concomitant]
     Active Substance: DOCUSATE SODIUM\SENNOSIDES
     Indication: CONSTIPATION
     Dosage: 8.6 MG, 1 IN 1 D
     Route: 048
     Dates: start: 20151026
  7. FUROSEMIDE. [Concomitant]
     Active Substance: FUROSEMIDE
     Indication: PROPHYLAXIS
     Dosage: 20 MG, 2 IN 1 D
     Route: 042
     Dates: start: 20151015, end: 20151016
  8. NIFEDIPINE. [Concomitant]
     Active Substance: NIFEDIPINE
     Indication: HYPERTENSION
     Dosage: 30 MG, 1 IN 1 D
     Route: 048
     Dates: start: 20151026, end: 20151125
  9. TAMSULOSIN [Concomitant]
     Active Substance: TAMSULOSIN
     Indication: BENIGN PROSTATIC HYPERPLASIA
  10. VENETOCLAX [Suspect]
     Active Substance: VENETOCLAX
     Dosage: 400 MG, 1 IN 1 D
     Route: 048
     Dates: start: 20151013, end: 20151013
  11. ZOFRAN [Concomitant]
     Active Substance: ONDANSETRON HYDROCHLORIDE
     Indication: NAUSEA
     Dosage: 8 MG, 1 IN 1 D
     Route: 048
     Dates: start: 20151026, end: 20151125
  12. VANCOMYCIN [Concomitant]
     Active Substance: VANCOMYCIN
     Indication: SEPSIS
     Dosage: 1250 MG, 3 IN 1 D
     Route: 042
     Dates: start: 20151019, end: 20151022
  13. CEFEPIME [Concomitant]
     Active Substance: CEFEPIME HYDROCHLORIDE
     Indication: INFECTION PROPHYLAXIS
     Dosage: 2000 MG, 3 IN 1 D
     Dates: start: 20151017, end: 20151026
  14. MYCAMINE [Concomitant]
     Active Substance: MICAFUNGIN SODIUM
     Indication: INFECTION PROPHYLAXIS
     Dosage: 50 MG, 1 IN 1 D
     Route: 042
     Dates: start: 20151026
  15. VENETOCLAX [Suspect]
     Active Substance: VENETOCLAX
     Dosage: 100 MG, 1 IN 1 D
     Route: 048
     Dates: start: 20151011, end: 20151011
  16. VENETOCLAX [Suspect]
     Active Substance: VENETOCLAX
     Dosage: 200 MG, 1 IN 1 D
     Route: 048
     Dates: start: 20151012, end: 20151012
  17. VENETOCLAX [Suspect]
     Active Substance: VENETOCLAX
     Dosage: 600 MG, 1 IN 1 D
     Route: 048
     Dates: start: 20151020, end: 20151119
  18. VENETOCLAX [Suspect]
     Active Substance: VENETOCLAX
     Indication: ACUTE MYELOID LEUKAEMIA
     Dosage: 50 MG, 1 IN 1 D
     Route: 048
     Dates: start: 20151010, end: 20151010
  19. VENETOCLAX [Suspect]
     Active Substance: VENETOCLAX
     Dosage: 600 MG, 1 IN 1 D
     Route: 048
     Dates: start: 20151014, end: 20151014
  20. OMEPRAZOLE. [Concomitant]
     Active Substance: OMEPRAZOLE
     Indication: GASTROOESOPHAGEAL REFLUX DISEASE
     Dosage: 20 MG, 1 IN 1 D
     Route: 048
     Dates: start: 20151026, end: 20151125
  21. CYTARABINE. [Suspect]
     Active Substance: CYTARABINE
     Indication: ACUTE MYELOID LEUKAEMIA
     Dosage: 20 MG/M2 DAILY, DAYS 1 THROUGH 10 OF 28 DAY CYCLE
     Route: 058
     Dates: start: 20151009, end: 20151014
  22. CYTARABINE. [Suspect]
     Active Substance: CYTARABINE
     Dosage: 20 MG/M2 DAILY, DAYS 1 THROUGH 10 OF 28 DAY CYCLE
     Route: 058
     Dates: start: 20151106, end: 20151115
  23. VALTREX [Concomitant]
     Active Substance: VALACYCLOVIR HYDROCHLORIDE
     Indication: SEPSIS
     Dosage: 500 MG, 2 IN 1 D
     Route: 048
     Dates: start: 20151015
  24. FUROSEMIDE. [Concomitant]
     Active Substance: FUROSEMIDE
     Indication: HYPERTENSION

REACTIONS (2)
  - Acute hepatic failure [Fatal]
  - Hepatic failure [Recovered/Resolved]

NARRATIVE: CASE EVENT DATE: 20151120
